FAERS Safety Report 4655203-8 (Version None)
Quarter: 2005Q2

REPORT INFORMATION
  Report Type: 
  Country: None (occurrence: None)
  Receive Date: 20050506
  Receipt Date: 20041203
  Transmission Date: 20051028
  Serious: Yes (Other)
  Sender: FDA-Public Use
  Company Number: GB-GLAXOSMITHKLINE-B0359481A

PATIENT
  Sex: Female

DRUGS (3)
  1. PAROXETINE HYDROCHLORIDE [Suspect]
     Indication: NECK PAIN
     Route: 065
     Dates: start: 19990101
  2. CARBAMAZEPINE [Concomitant]
  3. CHLORDIAZEPOXIDE [Concomitant]

REACTIONS (13)
  - COMPLETED SUICIDE [None]
  - CONTUSION [None]
  - DYSPHAGIA [None]
  - DYSPNOEA [None]
  - ELECTRIC SHOCK [None]
  - FACIAL PAIN [None]
  - HYPOAESTHESIA [None]
  - HYPOAESTHESIA ORAL [None]
  - ILL-DEFINED DISORDER [None]
  - LYMPHADENOPATHY [None]
  - PHARYNGITIS [None]
  - TRISMUS [None]
  - WEIGHT DECREASED [None]
